FAERS Safety Report 14656885 (Version 1)
Quarter: 2018Q1

REPORT INFORMATION
  Report Type: Spontaneous
  Country: US (occurrence: US)
  Receive Date: 20180319
  Receipt Date: 20180319
  Transmission Date: 20180509
  Serious: No
  Sender: FDA-Public Use
  Company Number: US-SA-2017SA116890

PATIENT
  Sex: Female

DRUGS (1)
  1. NASACORT ALLERGY 24HR [Suspect]
     Active Substance: TRIAMCINOLONE ACETONIDE
     Dosage: MULTIPLE TIMES DURING THE DAY, EVERY DAY
     Route: 065

REACTIONS (3)
  - Condition aggravated [Unknown]
  - Product use issue [Unknown]
  - Therapeutic response decreased [Unknown]
